FAERS Safety Report 6173824-0 (Version None)
Quarter: 2009Q2

REPORT INFORMATION
  Report Type: 
  Country: None (occurrence: None)
  Receive Date: 20090429
  Receipt Date: 20090429
  Transmission Date: 20091009
  Serious: Yes (Other)
  Sender: FDA-Public Use
  Company Number: None

PATIENT
  Sex: Male
  Weight: 113.3993 kg

DRUGS (1)
  1. VYVANSE [Suspect]
     Indication: ATTENTION DEFICIT/HYPERACTIVITY DISORDER
     Dosage: 30MG ONCE DAILY PO
     Route: 048
     Dates: start: 20090403, end: 20090417

REACTIONS (4)
  - CONVULSION [None]
  - FALL [None]
  - JOINT DISLOCATION [None]
  - UPPER LIMB FRACTURE [None]
